FAERS Safety Report 23990121 (Version 2)
Quarter: 2024Q2

REPORT INFORMATION
  Report Type: Report from Study
  Country: US (occurrence: US)
  Receive Date: 20240619
  Receipt Date: 20240624
  Transmission Date: 20240716
  Serious: Yes (Other)
  Sender: FDA-Public Use
  Company Number: US-SA-SAC20240618000170

PATIENT
  Age: 82 Year
  Sex: Female

DRUGS (1)
  1. DUPIXENT [Suspect]
     Active Substance: DUPILUMAB
     Indication: Asthma
     Dosage: 300 MG, QOW
     Route: 058
     Dates: start: 2024

REACTIONS (13)
  - Glaucoma [Unknown]
  - Macular degeneration [Unknown]
  - Musculoskeletal stiffness [Recovering/Resolving]
  - Muscle spasms [Recovering/Resolving]
  - Visual impairment [Recovering/Resolving]
  - Hand deformity [Recovering/Resolving]
  - Back pain [Recovering/Resolving]
  - Dyspnoea [Unknown]
  - Cough [Unknown]
  - Osteoporosis [Unknown]
  - Arthritis [Unknown]
  - Pain in extremity [Unknown]
  - Neck pain [Unknown]

NARRATIVE: CASE EVENT DATE: 20240101
